FAERS Safety Report 15808935 (Version 1)
Quarter: 2019Q1

REPORT INFORMATION
  Report Type: Spontaneous
  Country: ES (occurrence: ES)
  Receive Date: 20190110
  Receipt Date: 20190110
  Transmission Date: 20190417
  Serious: Yes (Hospitalization)
  Sender: FDA-Public Use
  Company Number: PHHY2019ES002223

PATIENT
  Age: 37 Year
  Sex: Female

DRUGS (2)
  1. AMOXICILLIN, CLAVULANATE [Suspect]
     Active Substance: AMOXICILLIN\CLAVULANATE POTASSIUM
     Indication: PERITONSILLAR ABSCESS
     Dosage: 1 DF, Q8H
     Route: 065
     Dates: start: 20180830
  2. NAPROXEN. [Suspect]
     Active Substance: NAPROXEN
     Indication: PERITONSILLAR ABSCESS
     Dosage: 500 MG, Q12H
     Route: 065
     Dates: start: 20180915

REACTIONS (3)
  - Pain in extremity [Recovered/Resolved]
  - Purpura [Recovered/Resolved]
  - Odynophagia [Recovered/Resolved]

NARRATIVE: CASE EVENT DATE: 20181019
